FAERS Safety Report 4346798-2 (Version None)
Quarter: 2004Q1

REPORT INFORMATION
  Report Type: 
  Country: None (occurrence: None)
  Receive Date: 20040329
  Receipt Date: 20031215
  Transmission Date: 20041129
  Serious: No
  Sender: FDA-Public Use
  Company Number: USA031254661

PATIENT
  Age: 8 Year
  Sex: Female
  Weight: 39 kg

DRUGS (2)
  1. STRATTERA [Suspect]
     Indication: ATTENTION DEFICIT/HYPERACTIVITY DISORDER
     Dosage: 40 MG/DAY
     Dates: start: 20031101
  2. ZOLOFT [Concomitant]

REACTIONS (3)
  - SOMNOLENCE [None]
  - VIRAL INFECTION [None]
  - WEIGHT DECREASED [None]
